FAERS Safety Report 12347452 (Version 1)
Quarter: 2016Q2

REPORT INFORMATION
  Report Type: Spontaneous
  Country: US (occurrence: US)
  Receive Date: 20160509
  Receipt Date: 20160509
  Transmission Date: 20160815
  Serious: Yes (Other)
  Sender: FDA-Public Use
  Company Number: US-UCBSA-2015032072

PATIENT
  Age: 49 Year
  Sex: Female
  Weight: 80.7 kg

DRUGS (1)
  1. CIMZIA [Suspect]
     Active Substance: CERTOLIZUMAB PEGOL
     Indication: RHEUMATOID ARTHRITIS
     Dosage: 400 MG, EV 2 WEEKS (2 INJ OF 200 MG TO EQUAL 400 MG)
     Route: 058
     Dates: start: 20150831, end: 20150928

REACTIONS (4)
  - Injection site pain [Recovered/Resolved]
  - Abdominal pain [Unknown]
  - Injection site swelling [Recovered/Resolved]
  - Injection site erythema [Recovered/Resolved]

NARRATIVE: CASE EVENT DATE: 20150914
